FAERS Safety Report 4561542-1 (Version None)
Quarter: 2005Q1

REPORT INFORMATION
  Report Type: 
  Country: None (occurrence: None)
  Receive Date: 20050121
  Receipt Date: 20041214
  Transmission Date: 20050727
  Serious: Yes (Hospitalization, Other)
  Sender: FDA-Public Use
  Company Number: US_0501109945

PATIENT
  Age: 44 Year
  Sex: Female
  Weight: 66 kg

DRUGS (6)
  1. ZYPREXA [Suspect]
     Indication: DISSOCIATIVE IDENTITY DISORDER
     Dosage: 5 MG AT BEDTME
     Dates: start: 20000814, end: 20030808
  2. SINEQUAN [Concomitant]
  3. SERZONE [Concomitant]
  4. LORTAB [Concomitant]
  5. XANAX (ALPRAZOLAM DUM) [Concomitant]
  6. THORAZINE [Concomitant]

REACTIONS (43)
  - AGITATION [None]
  - AKATHISIA [None]
  - ASTHMA [None]
  - BLOOD CALCIUM DECREASED [None]
  - CHRONIC OBSTRUCTIVE AIRWAYS DISEASE EXACERBATED [None]
  - CORONARY ARTERY DISEASE [None]
  - CUSHINGOID [None]
  - DIABETES MELLITUS INADEQUATE CONTROL [None]
  - DIARRHOEA [None]
  - DISCOMFORT [None]
  - DISSOCIATIVE DISORDER [None]
  - DRY SKIN [None]
  - EATING DISORDER [None]
  - EMOTIONAL DISTRESS [None]
  - EMPHYSEMA [None]
  - FATIGUE [None]
  - FEELING ABNORMAL [None]
  - HYPERCHOLESTEROLAEMIA [None]
  - HYPERGLYCAEMIA [None]
  - HYPOAESTHESIA [None]
  - HYPOGLYCAEMIA [None]
  - HYPOXIA [None]
  - LUNG DISORDER [None]
  - MAJOR DEPRESSION [None]
  - MUSCLE SPASMS [None]
  - MYOCARDIAL INFARCTION [None]
  - NAUSEA [None]
  - NIGHT SWEATS [None]
  - NOCTURIA [None]
  - OEDEMA PERIPHERAL [None]
  - ORAL CANDIDIASIS [None]
  - OVERDOSE [None]
  - PAIN [None]
  - PARAESTHESIA [None]
  - RESTLESSNESS [None]
  - RHINITIS ALLERGIC [None]
  - SUICIDAL IDEATION [None]
  - TEMPERATURE INTOLERANCE [None]
  - THINKING ABNORMAL [None]
  - UPPER RESPIRATORY TRACT INFECTION [None]
  - VISION BLURRED [None]
  - WEIGHT INCREASED [None]
  - WHEEZING [None]
